FAERS Safety Report 19467673 (Version 2)
Quarter: 2021Q3

REPORT INFORMATION
  Report Type: Report from Study
  Country: AU (occurrence: AU)
  Receive Date: 20210628
  Receipt Date: 20210702
  Transmission Date: 20211014
  Serious: Yes (Hospitalization)
  Sender: FDA-Public Use
  Company Number: AU-AMGEN-AUSCT2021097617

PATIENT
  Age: 60 Year
  Sex: Male

DRUGS (16)
  1. PHENERGAN [Concomitant]
     Active Substance: PROMETHAZINE HYDROCHLORIDE
     Indication: INFUSION RELATED REACTION
     Dosage: 12.5 MILLIGRAM, STAT
     Route: 042
     Dates: start: 20210525, end: 20210525
  2. ESOMEPRAZOLE. [Concomitant]
     Active Substance: ESOMEPRAZOLE MAGNESIUM
     Indication: GASTRIC ULCER
     Dosage: 1 DOSAGE FORM, QD
     Route: 048
     Dates: start: 2016
  3. MORPHINE [Concomitant]
     Active Substance: MORPHINE
     Dosage: 5 MILLIGRAM STAT
     Route: 058
     Dates: start: 20210525, end: 20210525
  4. DECOZOL [MICONAZOLE NITRATE] [Concomitant]
     Indication: ORAL CANDIDIASIS
     Dosage: 2.5 MILLIGRAM, QD
     Route: 048
     Dates: start: 20210514
  5. MORPHINE [Concomitant]
     Active Substance: MORPHINE
     Indication: INFUSION RELATED REACTION
     Dosage: 5 MILLIGRAM STAT
     Route: 058
     Dates: start: 20210504, end: 20210504
  6. DENOSUMAB [Suspect]
     Active Substance: DENOSUMAB
     Indication: METASTATIC MALIGNANT MELANOMA
     Dosage: 120 MILLIGRAM
     Route: 058
     Dates: start: 20210412
  7. PARACETAMOL [Concomitant]
     Active Substance: ACETAMINOPHEN
     Indication: INFUSION RELATED REACTION
     Dosage: 1 GRAM, STAT
     Route: 048
     Dates: start: 20210504, end: 20210504
  8. NORMAL SALINE [Concomitant]
     Active Substance: SODIUM CHLORIDE
     Indication: INFUSION RELATED REACTION
     Dosage: 250 MILLILITER
     Route: 042
     Dates: start: 20210504, end: 20210504
  9. LORATADINE. [Concomitant]
     Active Substance: LORATADINE
     Indication: PREMEDICATION
     Dosage: 10 MILLIGRAM, STAT
     Route: 048
     Dates: start: 20210525, end: 20210525
  10. IPILIMUMAB [Suspect]
     Active Substance: IPILIMUMAB
     Indication: METASTATIC MALIGNANT MELANOMA
     Dosage: 360 MILLIGRAM
     Route: 042
     Dates: start: 20210412, end: 20210525
  11. BIMATOPROST. [Concomitant]
     Active Substance: BIMATOPROST
     Indication: GLAUCOMA
     Dosage: 1 DROP, QD/ ONE DROP IN EACH EYE
     Route: 061
     Dates: start: 2013
  12. PARACETAMOL [Concomitant]
     Active Substance: ACETAMINOPHEN
     Dosage: 1 GRAM, STAT
     Route: 048
     Dates: start: 20210525, end: 20210525
  13. NIVOLUMAB [Suspect]
     Active Substance: NIVOLUMAB
     Indication: METASTATIC MALIGNANT MELANOMA
     Dosage: 120 MILLIGRAM
     Route: 042
     Dates: start: 20210412, end: 20210525
  14. CALTRATE [Concomitant]
     Active Substance: CALCIUM CARBONATE
     Dosage: 1 DOSAGE FORM, QD
     Route: 048
     Dates: start: 20210412
  15. PROMETHAZINE [Concomitant]
     Active Substance: PROMETHAZINE HYDROCHLORIDE
     Indication: INFUSION RELATED REACTION
     Dosage: 12.5 MILLIGRAM
     Route: 042
     Dates: start: 20210504, end: 20210504
  16. FUNGILIN [Concomitant]
     Active Substance: AMPHOTERICIN B
     Indication: ORAL CANDIDIASIS
     Dosage: 10 MILLIGRAM, TID
     Route: 048
     Dates: start: 20210608

REACTIONS (1)
  - Colitis [Recovered/Resolved]

NARRATIVE: CASE EVENT DATE: 20210610
